FAERS Safety Report 18673144 (Version 2)
Quarter: 2021Q1

REPORT INFORMATION
  Report Type: Spontaneous
  Country: US (occurrence: US)
  Receive Date: 20201229
  Receipt Date: 20210107
  Transmission Date: 20210419
  Serious: No
  Sender: FDA-Public Use
  Company Number: US-ALK-ABELLO A/S-2020AA004206

PATIENT

DRUGS (9)
  1. STAE BULK 225 (PHLEUM PRATENSE) [Suspect]
     Active Substance: PHLEUM PRATENSE POLLEN
     Indication: HYPERSENSITIVITY
     Dosage: UNK
     Dates: start: 202003, end: 20201124
  2. STERILE DILUENT FOR ALLERGENIC EXTRACT NOS [Suspect]
     Active Substance: ALBUMIN HUMAN OR GLYCERIN OR PHENOL
     Indication: PRODUCT USED FOR UNKNOWN INDICATION
     Dosage: UNK
     Route: 058
     Dates: start: 202003, end: 20201124
  3. TAE BULK 1143 (BETULA NIGRA) [Suspect]
     Active Substance: BETULA NIGRA POLLEN
     Indication: HYPERSENSITIVITY
     Dosage: UNK
     Dates: start: 202003, end: 20201124
  4. TAE BULK 153 (QUERCUS ALBA) [Suspect]
     Active Substance: QUERCUS ALBA POLLEN
     Indication: HYPERSENSITIVITY
     Dosage: UNK
     Dates: start: 202003, end: 20201124
  5. TAE BULK 312 (ARTEMISIA VULGARIS) [Suspect]
     Active Substance: ARTEMISIA VULGARIS POLLEN
     Indication: HYPERSENSITIVITY
     Dosage: UNK
     Dates: start: 202003, end: 20201124
  6. BENADRYL                           /00945501/ [Concomitant]
     Active Substance: ACRIVASTINE
     Indication: PREMEDICATION
     Dosage: UNK
     Dates: start: 20201124
  7. STAE BULK 302 AMBROSIA ARTEMISIIFOLIA [Suspect]
     Active Substance: AMBROSIA ARTEMISIIFOLIA POLLEN
     Indication: HYPERSENSITIVITY
     Dosage: UNK
     Dates: start: 202003, end: 20201124
  8. STAE BULK 555 CAT HAIR (FELIS DOMESTICUS) [Suspect]
     Active Substance: FELIS CATUS HAIR
     Indication: HYPERSENSITIVITY
     Dosage: UNK
     Dates: start: 202003, end: 20201124
  9. TAE BULK 156 (ULMUS AMERICANA) [Suspect]
     Active Substance: ULMUS AMERICANA POLLEN
     Indication: HYPERSENSITIVITY
     Dosage: UNK
     Route: 058
     Dates: start: 202003, end: 20201124

REACTIONS (3)
  - Pruritus [Recovered/Resolved]
  - Rash [Recovered/Resolved]
  - Urticaria [Recovered/Resolved]

NARRATIVE: CASE EVENT DATE: 20201117
